FAERS Safety Report 13265489 (Version 1)
Quarter: 2017Q1

REPORT INFORMATION
  Report Type: Spontaneous
  Country: SE (occurrence: SE)
  Receive Date: 20170223
  Receipt Date: 20170223
  Transmission Date: 20170428
  Serious: Yes (Disabling)
  Sender: FDA-Public Use
  Company Number: SE-ASTRAZENECA-2017SE18388

PATIENT
  Age: 60 Year
  Sex: Male

DRUGS (6)
  1. METOPROLOL. [Suspect]
     Active Substance: METOPROLOL
     Route: 048
     Dates: start: 20140823
  2. NICORETTE [Suspect]
     Active Substance: NICOTINE
     Dosage: EVERY DAY
     Route: 065
     Dates: start: 20140823
  3. LIPITOR [Suspect]
     Active Substance: ATORVASTATIN CALCIUM
     Route: 048
     Dates: start: 20140823
  4. RAMIPRIL. [Suspect]
     Active Substance: RAMIPRIL
     Route: 048
     Dates: start: 20140823
  5. BRILIQUE [Suspect]
     Active Substance: TICAGRELOR
     Route: 048
     Dates: start: 20140823, end: 20150603
  6. TROMBYL [Suspect]
     Active Substance: ASPIRIN
     Route: 048
     Dates: start: 20140823

REACTIONS (4)
  - Dyspnoea [Unknown]
  - Periodontitis [Unknown]
  - Tooth loss [Not Recovered/Not Resolved]
  - Nasal polyps [Unknown]

NARRATIVE: CASE EVENT DATE: 20140916
